FAERS Safety Report 8540073-8 (Version None)
Quarter: 2012Q3

REPORT INFORMATION
  Report Type: 
  Country: None (occurrence: None)
  Receive Date: 20120726
  Receipt Date: 20120717
  Transmission Date: 20120928
  Serious: Yes (Hospitalization)
  Sender: FDA-Public Use
  Company Number: FR-ASTRAZENECA-2012SE51223

PATIENT
  Age: 70 Year
  Sex: Female

DRUGS (3)
  1. ATACAND [Suspect]
     Route: 048
     Dates: start: 20120601, end: 20120618
  2. CLINDAMYCIN HCL [Suspect]
     Indication: OSTEITIS
     Route: 048
     Dates: start: 20120601, end: 20120618
  3. OFLOXACIN [Suspect]
     Indication: OSTEITIS
     Route: 048
     Dates: start: 20120531, end: 20120618

REACTIONS (1)
  - RASH MACULO-PAPULAR [None]
